FAERS Safety Report 9398304 (Version 1)
Quarter: 2013Q3

REPORT INFORMATION
  Report Type: Spontaneous
  Country: US (occurrence: US)
  Receive Date: 20130712
  Receipt Date: 20130712
  Transmission Date: 20140515
  Serious: No
  Sender: FDA-Public Use
  Company Number: US-GLAXOSMITHKLINE-A1003741A

PATIENT
  Age: 69 Year
  Sex: Male

DRUGS (8)
  1. FLOVENT [Suspect]
     Indication: CHRONIC OBSTRUCTIVE PULMONARY DISEASE
     Dosage: 2PUFF TWICE PER DAY
     Route: 055
     Dates: start: 20050629
  2. ALBUTEROL [Concomitant]
  3. CLONAZEPAM [Concomitant]
  4. CLOPIDOGREL [Concomitant]
  5. SIMVASTATIN [Concomitant]
  6. ASPIRIN [Concomitant]
  7. FISH OIL [Concomitant]
  8. MULTIVITAMIN [Concomitant]

REACTIONS (2)
  - Dysphonia [Not Recovered/Not Resolved]
  - Product quality issue [Unknown]
